FAERS Safety Report 6691506-3 (Version None)
Quarter: 2010Q2

REPORT INFORMATION
  Report Type: 
  Country: None (occurrence: None)
  Receive Date: 20100419
  Receipt Date: 20100408
  Transmission Date: 20101027
  Serious: Yes (Other)
  Sender: FDA-Public Use
  Company Number: 1000013205

PATIENT
  Age: 16 Year
  Sex: Female

DRUGS (3)
  1. ESCITALOPRAM [Suspect]
     Dosage: 20 MG (20 MG, 1 IN 1 D), ORAL; 30 MG (30 MG, 1 IN 1 D), ORAL
     Route: 048
     Dates: end: 20100401
  2. ESCITALOPRAM [Suspect]
     Dosage: 20 MG (20 MG, 1 IN 1 D), ORAL; 30 MG (30 MG, 1 IN 1 D), ORAL
     Route: 048
     Dates: start: 20100401
  3. ALPRAZOLAM [Concomitant]

REACTIONS (3)
  - OFF LABEL USE [None]
  - OVERDOSE [None]
  - SUICIDAL IDEATION [None]
